FAERS Safety Report 8609575-X (Version None)
Quarter: 2012Q3

REPORT INFORMATION
  Report Type: 
  Country: None (occurrence: None)
  Receive Date: 20120423
  Receipt Date: 20081229
  Transmission Date: 20120928
  Serious: Yes (Other)
  Sender: FDA-Public Use
  Company Number: PHEH2008US11033

PATIENT
  Sex: Female

DRUGS (1)
  1. FEMARA [Suspect]
     Indication: OVARIAN CANCER
     Dosage: 2.5 MG, QD, ORAL
     Route: 048
     Dates: end: 20081211

REACTIONS (2)
  - DRUG INEFFECTIVE [None]
  - NEOPLASM MALIGNANT [None]
